FAERS Safety Report 4294028-2 (Version None)
Quarter: 2004Q1

REPORT INFORMATION
  Report Type: 
  Country: None (occurrence: None)
  Receive Date: 20040211
  Receipt Date: 20040126
  Transmission Date: 20041129
  Serious: Yes (Hospitalization)
  Sender: FDA-Public Use
  Company Number: 10044474-NA01-14

PATIENT
  Age: 49 Year
  Sex: Female

DRUGS (3)
  1. VANCOMYCIN/INVANZ ANTIBIOTIC THERAPY [Concomitant]
  2. SODIUM CHLORIDE INJ [Suspect]
     Indication: CATHETER RELATED COMPLICATION
     Dosage: 5ML, HEPARINIZED SALINE SYRINGE; FREQUENCY CATHETER FLUSH PRN
     Dates: start: 20030910
  3. SODIUM CHLORIDE INJ [Suspect]
     Indication: PROPHYLAXIS
     Dosage: 5ML, HEPARINIZED SALINE SYRINGE; FREQUENCY CATHETER FLUSH PRN
     Dates: start: 20030910

REACTIONS (2)
  - BLOOD CULTURE POSITIVE [None]
  - PSEUDOMONAS INFECTION [None]
